FAERS Safety Report 6230154-6 (Version None)
Quarter: 2009Q2

REPORT INFORMATION
  Report Type: 
  Country: None (occurrence: None)
  Receive Date: 20090615
  Receipt Date: 20090604
  Transmission Date: 20091009
  Serious: Yes (Hospitalization)
  Sender: FDA-Public Use
  Company Number: PHHY2008JP28199

PATIENT
  Sex: Female
  Weight: 26 kg

DRUGS (10)
  1. SANDIMMUNE [Suspect]
     Indication: APLASTIC ANAEMIA
     Dosage: 40 MG/DAY
     Route: 042
     Dates: start: 20080320, end: 20080422
  2. METHYLPREDNISOLONE [Suspect]
     Indication: APLASTIC ANAEMIA
     Dosage: UNK
     Route: 065
     Dates: start: 20080421
  3. DECADRON [Suspect]
     Indication: APLASTIC ANAEMIA
     Dosage: 1.6 MG/DAY
     Route: 042
     Dates: start: 20080320, end: 20080422
  4. LYMPHOGLOBULINE [Suspect]
     Indication: APLASTIC ANAEMIA
     Dosage: 280 MG/DAY
     Route: 042
     Dates: start: 20080421, end: 20080422
  5. NEUPOGEN [Concomitant]
     Indication: APLASTIC ANAEMIA
  6. ANTIBIOTICS [Concomitant]
     Indication: PNEUMONIA
  7. VFEND [Concomitant]
     Indication: FUNGAL INFECTION
     Dosage: 120 MG
     Route: 042
     Dates: start: 20080118, end: 20080510
  8. GRAN [Concomitant]
     Indication: NEUTROPHIL COUNT DECREASED
     Dosage: 300 UG
     Route: 042
     Dates: start: 20080320, end: 20080430
  9. GASTER [Concomitant]
     Indication: GASTRIC ULCER
     Dosage: 20 MG
     Route: 042
     Dates: start: 20080118
  10. FIRSTCIN [Concomitant]
     Indication: SEPSIS
     Dosage: 2 G
     Route: 042
     Dates: start: 20080118, end: 20080501

REACTIONS (8)
  - CEREBRAL HAEMORRHAGE [None]
  - DEPRESSED LEVEL OF CONSCIOUSNESS [None]
  - HEADACHE [None]
  - HEMIANOPIA [None]
  - HYPERTENSION [None]
  - RESTLESSNESS [None]
  - REVERSIBLE POSTERIOR LEUKOENCEPHALOPATHY SYNDROME [None]
  - SOMNOLENCE [None]
